FAERS Safety Report 10362965 (Version 1)
Quarter: 2014Q3

REPORT INFORMATION
  Report Type: Spontaneous
  Country: PL (occurrence: PL)
  Receive Date: 20140805
  Receipt Date: 20140805
  Transmission Date: 20150326
  Serious: Yes (Other)
  Sender: FDA-Public Use
  Company Number: PL-ACTAVIS-2014-16733

PATIENT
  Age: 78 Year
  Sex: Male

DRUGS (3)
  1. LACTULOSE (UNKNOWN) [Suspect]
     Active Substance: LACTULOSE
     Indication: CONSTIPATION
     Dosage: 15 ML, BID
     Route: 065
  2. MORPHINE SULFATE (UNKNOWN) [Suspect]
     Active Substance: MORPHINE SULFATE
     Indication: CANCER PAIN
     Dosage: 60 MG, DAILY
     Route: 048
  3. FENTANYL. [Suspect]
     Active Substance: FENTANYL
     Indication: CANCER PAIN
     Dosage: 50 MICROM/H
     Route: 062

REACTIONS (4)
  - Constipation [None]
  - Constipation [Recovering/Resolving]
  - Abdominal pain [Unknown]
  - Abdominal distension [Unknown]
